FAERS Safety Report 8361414-0 (Version None)
Quarter: 2012Q2

REPORT INFORMATION
  Report Type: 
  Country: None (occurrence: None)
  Receive Date: 20120515
  Receipt Date: 20110819
  Transmission Date: 20120825
  Serious: No
  Sender: FDA-Public Use
  Company Number: US-ALEXION-A201101263

PATIENT
  Sex: Female

DRUGS (1)
  1. SOLIRIS [Suspect]
     Indication: PAROXYSMAL NOCTURNAL HAEMOGLOBINURIA
     Dosage: 900 MG Q2W
     Route: 042

REACTIONS (4)
  - BACK PAIN [None]
  - PAIN IN EXTREMITY [None]
  - SYNOVIAL CYST [None]
  - BURNING SENSATION [None]
